FAERS Safety Report 25548801 (Version 1)
Quarter: 2025Q3

REPORT INFORMATION
  Report Type: Other
  Country: SG (occurrence: SG)
  Receive Date: 20250714
  Receipt Date: 20250714
  Transmission Date: 20251021
  Serious: Yes (Hospitalization, Other)
  Sender: ANI
  Company Number: SG-ANIPHARMA-023530

PATIENT
  Sex: Male

DRUGS (2)
  1. VANCOMYCIN [Suspect]
     Active Substance: VANCOMYCIN
     Indication: Pyelonephritis
  2. AZTREONAM [Concomitant]
     Active Substance: AZTREONAM
     Indication: Drug hypersensitivity

REACTIONS (1)
  - Liver injury [Recovering/Resolving]
